FAERS Safety Report 25163169 (Version 1)
Quarter: 2025Q2

REPORT INFORMATION
  Report Type: Spontaneous
  Country: FR (occurrence: FR)
  Receive Date: 20250404
  Receipt Date: 20250404
  Transmission Date: 20250717
  Serious: Yes (Hospitalization)
  Sender: PURDUE
  Company Number: FR-PURDUE-USA-2025-0316558

PATIENT
  Age: 86 Year
  Sex: Male
  Weight: 74.5 kg

DRUGS (3)
  1. OXYCODONE HYDROCHLORIDE [Suspect]
     Active Substance: OXYCODONE HYDROCHLORIDE
     Indication: Spinal fracture
     Dosage: 20 MILLIGRAM, DAILY
     Route: 048
     Dates: start: 20250223, end: 20250314
  2. MIRTAZAPINE [Suspect]
     Active Substance: MIRTAZAPINE
     Indication: Sleep disorder
     Dosage: 15 MILLIGRAM, DAILY
     Route: 048
     Dates: start: 20250313, end: 20250314
  3. FUROSEMIDE [Suspect]
     Active Substance: FUROSEMIDE
     Indication: Sleep disorder
     Dosage: 0.5 DOSAGE FORM, DAILY
     Route: 048
     Dates: start: 20250305, end: 20250314

REACTIONS (2)
  - Coma [Recovered/Resolved]
  - Hypotension [Recovered/Resolved]

NARRATIVE: CASE EVENT DATE: 20250314
